FAERS Safety Report 7475161-0 (Version None)
Quarter: 2011Q1

REPORT INFORMATION
  Report Type: 
  Country: None (occurrence: None)
  Receive Date: 20110302
  Receipt Date: 20101104
  Transmission Date: 20110831
  Serious: Yes (Other)
  Sender: FDA-Public Use
  Company Number: 163-21880-10110796

PATIENT
  Age: 63 Year
  Sex: Male

DRUGS (2)
  1. ACETAMINOPHEN [Concomitant]
  2. REVLIMID [Suspect]
     Indication: CHRONIC LYMPHOCYTIC LEUKAEMIA
     Dosage: 5 MG, 1 IN 1 D, PO
     Route: 048
     Dates: start: 20101025, end: 20101029

REACTIONS (6)
  - BACK PAIN [None]
  - ABDOMINAL PAIN UPPER [None]
  - DYSPNOEA [None]
  - INSOMNIA [None]
  - CHEST PAIN [None]
  - ABASIA [None]
